FAERS Safety Report 5852139-1 (Version None)
Quarter: 2008Q3

REPORT INFORMATION
  Report Type: 
  Country: None (occurrence: None)
  Receive Date: 20080819
  Receipt Date: 20080819
  Transmission Date: 20090109
  Serious: Yes (Death, Life-Threatening)
  Sender: FDA-Public Use
  Company Number: None

PATIENT
  Age: 81 Year
  Sex: Male
  Weight: 56.8 kg

DRUGS (17)
  1. DIGOXIN [Suspect]
     Indication: ATRIAL FIBRILLATION
     Dosage: 0.125MG  Q1H PRN MAX 1MG IV
     Route: 042
  2. DIGOXIN [Suspect]
     Indication: TACHYCARDIA
     Dosage: 0.125MG  Q1H PRN MAX 1MG IV
     Route: 042
  3. AMIODARONE [Suspect]
     Indication: ATRIAL FIBRILLATION
     Dosage: 400MG DAILY PO  (DURATION: CHRONIC)
     Route: 048
  4. DILTIAZEM HCL [Concomitant]
  5. INDERAL [Concomitant]
  6. FLAGYL [Concomitant]
  7. CEFTRIAXONE [Concomitant]
  8. CITALOPRAM HYDROBROMIDE [Concomitant]
  9. DONEPEZIL HCL [Concomitant]
  10. LACTINEX [Concomitant]
  11. LEVAQUIN [Concomitant]
  12. VIT K [Concomitant]
  13. LOPERAMIDE HCL [Concomitant]
  14. MODAFINIL [Concomitant]
  15. MULTIPLE VITAMIN [Concomitant]
  16. WARFARIN SODIUM [Concomitant]
  17. PSYLLIUM [Concomitant]

REACTIONS (3)
  - CARDIAC ARREST [None]
  - CARDIO-RESPIRATORY ARREST [None]
  - LABORATORY TEST INTERFERENCE [None]
